FAERS Safety Report 21974601 (Version 1)
Quarter: 2023Q1

REPORT INFORMATION
  Report Type: Spontaneous
  Country: None (occurrence: GB)
  Receive Date: 20230209
  Receipt Date: 20230209
  Transmission Date: 20230417
  Serious: Yes (Hospitalization)
  Sender: FDA-Public Use
  Company Number: GB-B.Braun Medical Inc.-2137729

PATIENT
  Age: 6 Month
  Weight: 4.87 kg

DRUGS (1)
  1. ACETAMINOPHEN [Suspect]
     Active Substance: ACETAMINOPHEN
     Indication: Abdominal pain
     Route: 042
     Dates: start: 20220916, end: 20220918

REACTIONS (4)
  - Accidental overdose [Unknown]
  - Vomiting [Unknown]
  - Abdominal pain [Unknown]
  - Medication error [Unknown]
